FAERS Safety Report 10270475 (Version 2)
Quarter: 2015Q4

REPORT INFORMATION
  Report Type: Spontaneous
  Country: TR (occurrence: TR)
  Receive Date: 20140701
  Receipt Date: 20151026
  Transmission Date: 20160304
  Serious: Yes (Other)
  Sender: FDA-Public Use
  Company Number: TR-009507513-1406TUR012828

PATIENT
  Sex: Female

DRUGS (1)
  1. BCG LIVE [Suspect]
     Active Substance: BACILLUS CALMETTE-GUERIN SUBSTRAIN TICE LIVE ANTIGEN
     Indication: BLADDER TRANSITIONAL CELL CARCINOMA STAGE I
     Dosage: 1 DF, ONE VIAL OF BCG MIXED WITH 50 CC OF SALINE
     Route: 043

REACTIONS (1)
  - Bladder cancer [Unknown]
